FAERS Safety Report 25389094 (Version 1)
Quarter: 2025Q2

REPORT INFORMATION
  Report Type: Spontaneous
  Country: GB (occurrence: GB)
  Receive Date: 20250603
  Receipt Date: 20250603
  Transmission Date: 20250717
  Serious: Yes (Hospitalization, Other)
  Sender: AUROBINDO
  Company Number: GB-RP-045256

PATIENT

DRUGS (3)
  1. TAMOXIFEN [Suspect]
     Active Substance: TAMOXIFEN
     Indication: Product used for unknown indication
     Route: 065
  2. TESTOSTERONE [Concomitant]
     Active Substance: TESTOSTERONE
     Indication: Product used for unknown indication
     Dosage: 125 MILLIGRAM, EVERY WEEK
     Route: 065
  3. ANASTROZOLE [Concomitant]
     Active Substance: ANASTROZOLE
     Indication: Product used for unknown indication
     Dosage: 0.8 MILLIGRAM, EVERY WEEK (0.25 MG WEEKLY FOR THE PAST 18 MONTHS)
     Route: 065

REACTIONS (3)
  - Acute myocardial infarction [Unknown]
  - Cardiac ventricular thrombosis [Unknown]
  - Off label use [Unknown]
